FAERS Safety Report 12687370 (Version 1)
Quarter: 2016Q3

REPORT INFORMATION
  Report Type: Report from Study
  Country: US (occurrence: US)
  Receive Date: 20160826
  Receipt Date: 20160826
  Transmission Date: 20161109
  Serious: Yes (Hospitalization)
  Sender: FDA-Public Use
  Company Number: US-BIOGEN-2015BI082585

PATIENT
  Age: 51 Year
  Sex: Male

DRUGS (1)
  1. TECFIDERA [Suspect]
     Active Substance: DIMETHYL FUMARATE
     Indication: MULTIPLE SCLEROSIS
     Dosage: MAINTENANCE DOSE
     Route: 048
     Dates: start: 20140417

REACTIONS (7)
  - Pruritus [Not Recovered/Not Resolved]
  - Cholelithiasis [Recovered/Resolved]
  - Flushing [Not Recovered/Not Resolved]
  - Drug dose omission [Recovered/Resolved]
  - Memory impairment [Recovered/Resolved]
  - Pain [Not Recovered/Not Resolved]
  - Somnolence [Recovered/Resolved]

NARRATIVE: CASE EVENT DATE: 20150525
